FAERS Safety Report 9287266 (Version 3)
Quarter: 2013Q3

REPORT INFORMATION
  Report Type: Spontaneous
  Country: IE (occurrence: IE)
  Receive Date: 20130513
  Receipt Date: 20130712
  Transmission Date: 20140515
  Serious: Yes (Other)
  Sender: FDA-Public Use
  Company Number: IE-B.I. PHARMACEUTICALS,INC./RIDGEFIELD-2013-UK-01071UK

PATIENT
  Age: 70 Year
  Sex: Female

DRUGS (3)
  1. PRADAXA [Suspect]
     Indication: THROMBOSIS PROPHYLAXIS
     Dosage: 220 MG
  2. ELTROXIN [Concomitant]
  3. ANTIHYPERTENSIVES NON-SPECIFIC [Concomitant]

REACTIONS (2)
  - Hearing impaired [Recovered/Resolved]
  - Visual impairment [Recovered/Resolved]
